FAERS Safety Report 18434269 (Version 2)
Quarter: 2021Q2

REPORT INFORMATION
  Report Type: Report from Study
  Country: DE (occurrence: DE)
  Receive Date: 20201027
  Receipt Date: 20210512
  Transmission Date: 20210717
  Serious: Yes (Death, Life-Threatening)
  Sender: FDA-Public Use
  Company Number: DE-REGENERON PHARMACEUTICALS, INC.-2020-84338

PATIENT

DRUGS (18)
  1. L?THYROXIN                         /00068001/ [Concomitant]
     Active Substance: LEVOTHYROXINE
     Indication: HYPOTHYROIDISM
     Dosage: 75 MICROGRAM, QD
     Route: 048
     Dates: start: 201805
  2. CEMIPLIMAB [Suspect]
     Active Substance: CEMIPLIMAB
     Dosage: 350 MG, SINGLE
     Route: 042
     Dates: start: 20201020, end: 20201020
  3. AMLODIPINE [Concomitant]
     Active Substance: AMLODIPINE BESYLATE
     Indication: HYPERTONIA
     Dosage: 5 MILLIGRAM, QD
     Route: 048
     Dates: start: 2010
  4. BUDESONIDE. [Concomitant]
     Active Substance: BUDESONIDE
     Dosage: 6 MILLIGRAM, QD
     Route: 048
     Dates: start: 20201005
  5. BROMELAIN?POS [Concomitant]
     Active Substance: BROMELAINS
     Indication: PRODUCT USED FOR UNKNOWN INDICATION
     Dosage: UNK
     Dates: start: 2016, end: 20200920
  6. OPC FORTE [Concomitant]
     Indication: PRODUCT USED FOR UNKNOWN INDICATION
     Dosage: UNK
     Dates: start: 2016, end: 20200920
  7. BASEN KOMPLEX [Concomitant]
     Indication: PRODUCT USED FOR UNKNOWN INDICATION
     Dosage: UNK
     Dates: start: 2016, end: 20200920
  8. BUDESONIDE. [Concomitant]
     Active Substance: BUDESONIDE
     Dosage: 2 MILLIGRAM, QD
     Route: 054
     Dates: start: 20200920, end: 20201001
  9. SELENIUM [Concomitant]
     Active Substance: SELENIUM
     Indication: PRODUCT USED FOR UNKNOWN INDICATION
     Dosage: UNK
     Dates: start: 2016, end: 20200920
  10. BUDESONIDE. [Concomitant]
     Active Substance: BUDESONIDE
     Indication: IMMUNE-MEDIATED ENTEROCOLITIS
     Dosage: 9 MILLIGRAM, QD
     Route: 048
     Dates: start: 20200917, end: 20201004
  11. AHCC [Concomitant]
     Indication: PRODUCT USED FOR UNKNOWN INDICATION
     Dosage: UNK
     Dates: start: 2016, end: 20200920
  12. GRAVIOLA [Concomitant]
     Indication: PRODUCT USED FOR UNKNOWN INDICATION
     Dosage: 600 MILLIGRAM, BID
     Dates: start: 2016, end: 20200920
  13. ISA101B [Suspect]
     Active Substance: INVESTIGATIONAL PRODUCT
     Dosage: UNK, SINGLE
     Route: 058
     Dates: start: 20201020, end: 20201020
  14. BUDESONIDE. [Concomitant]
     Active Substance: BUDESONIDE
     Dosage: 2.3 MILLIGRAM, QD
     Route: 054
     Dates: start: 20201002
  15. COLIBIOGEN                         /00593101/ [Concomitant]
     Indication: PRODUCT USED FOR UNKNOWN INDICATION
     Dosage: UNK
     Dates: start: 2016, end: 20200920
  16. SULFORAPHANE. [Concomitant]
     Active Substance: SULFORAPHANE
     Indication: PRODUCT USED FOR UNKNOWN INDICATION
  17. GINGERIN PHYTOLISTIC [Concomitant]
     Indication: PRODUCT USED FOR UNKNOWN INDICATION
     Dosage: UNK
     Dates: start: 2016, end: 20200920
  18. CURCUCELL [Concomitant]
     Indication: PRODUCT USED FOR UNKNOWN INDICATION
     Dosage: UNK
     Dates: start: 2016, end: 20200920

REACTIONS (1)
  - Aspiration [Fatal]

NARRATIVE: CASE EVENT DATE: 20201020
